FAERS Safety Report 18656359 (Version 2)
Quarter: 2021Q1

REPORT INFORMATION
  Report Type: Spontaneous
  Country: US (occurrence: US)
  Receive Date: 20201223
  Receipt Date: 20210311
  Transmission Date: 20210419
  Serious: No
  Sender: FDA-Public Use
  Company Number: US-SA-2020SA367644

PATIENT
  Age: 62 Year
  Sex: Female

DRUGS (17)
  1. CALCIUM 600 + D3 PLUS MINERALS [Concomitant]
  2. SILDENAFIL CITRATE. [Concomitant]
     Active Substance: SILDENAFIL CITRATE
  3. THEOPHYLLINE [Concomitant]
     Active Substance: THEOPHYLLINE ANHYDROUS
  4. GABAPENTIN. [Concomitant]
     Active Substance: GABAPENTIN
  5. LUMIGAN [Concomitant]
     Active Substance: BIMATOPROST
  6. EPINASTINE HCL [Concomitant]
     Active Substance: EPINASTINE HYDROCHLORIDE
  7. PAXIL [PIROXICAM] [Concomitant]
     Active Substance: PIROXICAM
  8. BACLOFEN. [Concomitant]
     Active Substance: BACLOFEN
  9. ALLEGRA?D 24 HOUR [Concomitant]
     Active Substance: FEXOFENADINE HYDROCHLORIDE\PSEUDOEPHEDRINE HYDROCHLORIDE
  10. SINGULAIR [Concomitant]
     Active Substance: MONTELUKAST SODIUM
  11. DUPIXENT [Suspect]
     Active Substance: DUPILUMAB
     Indication: DERMATITIS ATOPIC
     Dosage: 300 MG,/2ML QOW
     Route: 058
     Dates: start: 201912
  12. DIPROLENE [Concomitant]
     Active Substance: BETAMETHASONE DIPROPIONATE
  13. ZETIA [Concomitant]
     Active Substance: EZETIMIBE
  14. DOXEPIN HCL [Concomitant]
     Active Substance: DOXEPIN HYDROCHLORIDE
  15. DUPIXENT [Suspect]
     Active Substance: DUPILUMAB
     Indication: NEURODERMATITIS
  16. PANTOPRAZOLE SODIUM. [Concomitant]
     Active Substance: PANTOPRAZOLE SODIUM
  17. ACYCLOVIR [ACICLOVIR] [Concomitant]
     Active Substance: ACYCLOVIR

REACTIONS (3)
  - Rash [Unknown]
  - Eye pain [Unknown]
  - Product dose omission issue [Unknown]
